FAERS Safety Report 8139015-9 (Version None)
Quarter: 2012Q1

REPORT INFORMATION
  Report Type: 
  Country: None (occurrence: None)
  Receive Date: 20120215
  Receipt Date: 20120206
  Transmission Date: 20120608
  Serious: Yes (Hospitalization)
  Sender: FDA-Public Use
  Company Number: US-ACTELION-A-NJ2012-59590

PATIENT

DRUGS (2)
  1. PROGRAF [Concomitant]
  2. TRACLEER [Suspect]
     Indication: PULMONARY ARTERIAL HYPERTENSION
     Dosage: UNK
     Route: 048
     Dates: start: 20080327

REACTIONS (4)
  - COUGH [None]
  - ASTHMA [None]
  - NASOPHARYNGITIS [None]
  - WHEEZING [None]
